FAERS Safety Report 18523673 (Version 1)
Quarter: 2020Q4

REPORT INFORMATION
  Report Type: Report from Study
  Country: JP (occurrence: JP)
  Receive Date: 20201119
  Receipt Date: 20201119
  Transmission Date: 20210114
  Serious: Yes (Death)
  Sender: FDA-Public Use
  Company Number: JP-JNJFOC-20201006862

PATIENT
  Age: 78 Year
  Sex: Female

DRUGS (16)
  1. VENTAVIS [Suspect]
     Active Substance: ILOPROST
     Indication: PULMONARY ARTERIAL HYPERTENSION
     Route: 055
     Dates: start: 20161101, end: 20161101
  2. VENTAVIS [Suspect]
     Active Substance: ILOPROST
     Route: 055
     Dates: start: 20161109, end: 20161203
  3. LANSOPRAZOLE. [Concomitant]
     Active Substance: LANSOPRAZOLE
     Route: 048
  4. MYSLEE [Concomitant]
     Active Substance: ZOLPIDEM TARTRATE
     Route: 048
  5. DIART [Concomitant]
     Active Substance: AZOSEMIDE
  6. MUCOSAL-L [Concomitant]
     Route: 048
  7. VENTAVIS [Suspect]
     Active Substance: ILOPROST
     Dosage: DRUG DOSAGE UNKNOWN
     Route: 055
     Dates: start: 20170531
  8. MAGNESIUM OXIDE. [Concomitant]
     Active Substance: MAGNESIUM OXIDE
     Route: 048
  9. OXYGEN. [Concomitant]
     Active Substance: OXYGEN
     Indication: PULMONARY ARTERIAL HYPERTENSION
     Dates: start: 20170531
  10. OPSUMIT [Concomitant]
     Active Substance: MACITENTAN
  11. ADEMPAS [Concomitant]
     Active Substance: RIOCIGUAT
     Route: 048
  12. AZILVA [Concomitant]
     Active Substance: AZILSARTAN KAMEDOXOMIL
     Route: 048
  13. VENTAVIS [Suspect]
     Active Substance: ILOPROST
     Route: 055
     Dates: start: 20161101, end: 20161102
  14. URSODEOXYCHOLIC ACID [Concomitant]
     Active Substance: URSODIOL
     Route: 048
  15. VENTAVIS [Suspect]
     Active Substance: ILOPROST
     Route: 055
     Dates: start: 20161103, end: 20161108
  16. BERAPROST SODIUM [Concomitant]
     Active Substance: BERAPROST SODIUM

REACTIONS (2)
  - Death [Fatal]
  - Therapeutic product effect incomplete [Unknown]

NARRATIVE: CASE EVENT DATE: 20200531
